FAERS Safety Report 9074443 (Version 1)
Quarter: 2013Q1

REPORT INFORMATION
  Report Type: Report from Study
  Country: US (occurrence: US)
  Receive Date: 20130129
  Receipt Date: 20130129
  Transmission Date: 20140127
  Serious: No
  Sender: FDA-Public Use
  Company Number: US-ABBOTT-12P-163-0927313-00

PATIENT
  Age: 12 Year
  Sex: Male

DRUGS (7)
  1. HUMIRA 40 MG/0.8 ML PEN [Suspect]
     Indication: CROHN^S DISEASE
     Dates: start: 20120307, end: 20120307
  2. HUMIRA 40 MG/0.8 ML PEN [Suspect]
     Dates: start: 20120321, end: 20120321
  3. HUMIRA 40 MG/0.8 ML PEN [Suspect]
     Dates: start: 20120404
  4. IRON [Concomitant]
     Indication: PRODUCT USED FOR UNKNOWN INDICATION
  5. CALCIUM [Concomitant]
     Indication: MINERAL SUPPLEMENTATION
  6. PREDNISONE [Concomitant]
     Indication: PRODUCT USED FOR UNKNOWN INDICATION
     Dosage: WEANING OFF SINCE STARTING HUMIRA
  7. PREDNISONE [Concomitant]
     Dosage: WEANING OFF SINCE STARTING HUMIRA

REACTIONS (4)
  - Rash macular [Unknown]
  - Rash [Not Recovered/Not Resolved]
  - Hypersensitivity [Unknown]
  - Dry skin [Unknown]
